FAERS Safety Report 19681956 (Version 4)
Quarter: 2021Q3

REPORT INFORMATION
  Report Type: Spontaneous
  Country: PL (occurrence: PL)
  Receive Date: 20210810
  Receipt Date: 20210923
  Transmission Date: 20211014
  Serious: Yes (Life-Threatening, Hospitalization)
  Sender: FDA-Public Use
  Company Number: PL-ABBVIE-21K-129-4032572-00

PATIENT
  Age: 75 Year
  Sex: Female

DRUGS (33)
  1. VENETOCLAX. [Suspect]
     Active Substance: VENETOCLAX
     Route: 048
     Dates: end: 20210819
  2. LEVOTHYROXINE. [Concomitant]
     Active Substance: LEVOTHYROXINE
     Indication: HYPOTHYROIDISM
     Route: 065
     Dates: start: 20210702
  3. PARACETAMOL [Concomitant]
     Active Substance: ACETAMINOPHEN
     Route: 065
     Dates: start: 20210726, end: 20210802
  4. VANCOMYCIN [Concomitant]
     Active Substance: VANCOMYCIN
     Indication: INFECTION
     Route: 065
     Dates: start: 20210704, end: 20210816
  5. SOTALOL. [Concomitant]
     Active Substance: SOTALOL
     Route: 065
     Dates: start: 20210702
  6. VENETOCLAX. [Suspect]
     Active Substance: VENETOCLAX
     Route: 048
     Dates: start: 20210727, end: 20210729
  7. VENETOCLAX. [Suspect]
     Active Substance: VENETOCLAX
     Route: 048
     Dates: start: 20210730, end: 20210803
  8. PEVONEDISTAT [Suspect]
     Active Substance: PEVONEDISTAT
     Indication: ACUTE MYELOID LEUKAEMIA
     Route: 041
     Dates: start: 20210726, end: 20210726
  9. MAGNESIUM [Concomitant]
     Active Substance: MAGNESIUM
     Route: 065
     Dates: start: 20210707, end: 20210726
  10. ETAMSYLATE [Concomitant]
     Active Substance: ETHAMSYLATE
     Indication: HAEMORRHAGE PROPHYLAXIS
     Route: 065
     Dates: start: 20210726, end: 20210802
  11. AZACITIDINE. [Suspect]
     Active Substance: AZACITIDINE
     Dosage: 75 MILLIGRAM/SQ. METER
     Route: 041
     Dates: start: 20210726, end: 20210730
  12. FUROSEMIDE. [Concomitant]
     Active Substance: FUROSEMIDE
     Indication: HYPERKALAEMIA
  13. ETAMSYLATE [Concomitant]
     Active Substance: ETHAMSYLATE
     Route: 065
     Dates: start: 20210727, end: 20210816
  14. PEVONEDISTAT [Suspect]
     Active Substance: PEVONEDISTAT
     Route: 041
     Dates: start: 20210726, end: 20210730
  15. LEVOTHYROXINE. [Concomitant]
     Active Substance: LEVOTHYROXINE
     Route: 065
     Dates: start: 20210702
  16. ONDANSETRON [Concomitant]
     Active Substance: ONDANSETRON
     Route: 065
     Dates: start: 20210726, end: 20210802
  17. ALLOPURINOL. [Concomitant]
     Active Substance: ALLOPURINOL
     Indication: TUMOUR LYSIS SYNDROME
     Route: 065
     Dates: start: 20210724
  18. RAMIPRIL. [Concomitant]
     Active Substance: RAMIPRIL
     Indication: HYPERTENSION
     Route: 065
     Dates: start: 20210101, end: 20210727
  19. AZACITIDINE. [Suspect]
     Active Substance: AZACITIDINE
     Indication: ACUTE MYELOID LEUKAEMIA
     Route: 048
     Dates: start: 20210726, end: 20210726
  20. AZACITIDINE. [Suspect]
     Active Substance: AZACITIDINE
     Route: 041
     Dates: start: 20210726, end: 20210730
  21. ONDANSETRON [Concomitant]
     Active Substance: ONDANSETRON
     Indication: PROPHYLAXIS OF NAUSEA AND VOMITING
     Route: 065
     Dates: start: 20210726, end: 20210802
  22. MAGNESIUM [Concomitant]
     Active Substance: MAGNESIUM
     Indication: HYPOMAGNESAEMIA
     Route: 065
     Dates: start: 20210726, end: 20210802
  23. PARACETAMOL [Concomitant]
     Active Substance: ACETAMINOPHEN
     Indication: PYREXIA
     Route: 065
     Dates: start: 20210727, end: 20210727
  24. VENETOCLAX. [Suspect]
     Active Substance: VENETOCLAX
     Route: 048
     Dates: start: 20210804, end: 20210809
  25. RIFAXIMIN. [Concomitant]
     Active Substance: RIFAXIMIN
     Indication: DIARRHOEA
     Route: 065
     Dates: start: 20210726, end: 20210802
  26. SOTALOL. [Concomitant]
     Active Substance: SOTALOL
     Indication: HYPERTENSION
     Route: 065
     Dates: start: 19900101
  27. VENETOCLAX. [Suspect]
     Active Substance: VENETOCLAX
     Indication: ACUTE MYELOID LEUKAEMIA
     Route: 048
     Dates: start: 20210726, end: 20210728
  28. AZACITIDINE. [Suspect]
     Active Substance: AZACITIDINE
     Route: 041
     Dates: start: 20210726, end: 20210728
  29. AZACITIDINE. [Suspect]
     Active Substance: AZACITIDINE
     Dosage: 75 MILLIGRAM/SQ. METER
     Route: 041
     Dates: end: 20210802
  30. HASCOVIR [Concomitant]
     Indication: INFECTION PROPHYLAXIS
     Route: 065
     Dates: start: 20210701
  31. FUROSEMIDE. [Concomitant]
     Active Substance: FUROSEMIDE
     Indication: HYPERPHOSPHATAEMIA
     Route: 065
     Dates: start: 20210726, end: 20210727
  32. FUROSEMIDE. [Concomitant]
     Active Substance: FUROSEMIDE
     Indication: TUMOUR LYSIS SYNDROME
  33. ESCITALOPRAM [Concomitant]
     Active Substance: ESCITALOPRAM OXALATE
     Indication: DEPRESSION
     Route: 065

REACTIONS (2)
  - Neutropenia [Recovered/Resolved]
  - Infection [Recovered/Resolved]

NARRATIVE: CASE EVENT DATE: 20210728
